FAERS Safety Report 9928510 (Version 1)
Quarter: 2014Q1

REPORT INFORMATION
  Report Type: Spontaneous
  Country: US (occurrence: None)
  Receive Date: 20140224
  Receipt Date: 20140224
  Transmission Date: 20141002
  Serious: Yes (Death)
  Sender: FDA-Public Use
  Company Number: NL01PV14.35229

PATIENT
  Age: 25 Year
  Sex: Female

DRUGS (5)
  1. UNKNOWN (ZOLPIDEM) TABLET [Suspect]
  2. ALPRAZOLAM (ALPRAZOLAM) [Suspect]
  3. CHLOROQUINE (CHLOROQUINE) [Concomitant]
     Route: 048
  4. DIPHENHYDRAMINE (DIPHENHYDRAMINE) [Suspect]
     Route: 048
  5. MIRTAZAPINE (MIRTAZAPINE) [Suspect]

REACTIONS (2)
  - Completed suicide [None]
  - Exposure via ingestion [None]
